FAERS Safety Report 7448774-X (Version None)
Quarter: 2011Q2

REPORT INFORMATION
  Report Type: 
  Country: None (occurrence: None)
  Receive Date: 20110429
  Receipt Date: 20100802
  Transmission Date: 20111010
  Serious: No
  Sender: FDA-Public Use
  Company Number: US-ASTRAZENECA-2010SE36087

PATIENT
  Age: 520 Month
  Sex: Female
  Weight: 81.6 kg

DRUGS (3)
  1. SPRINTEC [Concomitant]
  2. ZYRTEC-D 12 HOUR [Concomitant]
  3. NEXIUM [Suspect]
     Route: 048

REACTIONS (5)
  - URINE COLOUR ABNORMAL [None]
  - FATIGUE [None]
  - CHEST PAIN [None]
  - PYREXIA [None]
  - OROPHARYNGEAL PAIN [None]
